FAERS Safety Report 18711522 (Version 1)
Quarter: 2021Q1

REPORT INFORMATION
  Report Type: Spontaneous
  Country: US (occurrence: US)
  Receive Date: 20210106
  Receipt Date: 20210106
  Transmission Date: 20210419
  Serious: No
  Sender: FDA-Public Use
  Company Number: None

PATIENT
  Age: 71 Year
  Sex: Female
  Weight: 78.75 kg

DRUGS (5)
  1. ANASTROZOLE 1MG [Concomitant]
     Active Substance: ANASTROZOLE
  2. OXYCODONE 5MG [Concomitant]
     Active Substance: OXYCODONE
  3. OXYCODONE 10MG [Concomitant]
     Active Substance: OXYCODONE
  4. MORPHINE SULFATE ER 30MG [Concomitant]
     Active Substance: MORPHINE SULFATE
  5. IBRANCE [Suspect]
     Active Substance: PALBOCICLIB
     Indication: HYPERCALCAEMIA
     Route: 048
     Dates: start: 20201110

REACTIONS (2)
  - Confusional state [None]
  - Aphasia [None]

NARRATIVE: CASE EVENT DATE: 20210106
